FAERS Safety Report 7636174 (Version 3)
Quarter: 2013Q2

REPORT INFORMATION
  Report Type: Report from Study
  Country: JP (occurrence: JP)
  Receive Date: 20101021
  Receipt Date: 20130627
  Transmission Date: 20140414
  Serious: Yes (Hospitalization)
  Sender: FDA-Public Use
  Company Number: JP-ASTRAZENECA-2010SE48967

PATIENT
  Age: 75 Year
  Sex: Female
  Weight: 53 kg

DRUGS (3)
  1. ECARD HD [Suspect]
     Indication: HYPERTENSION
     Route: 048
     Dates: start: 20090903, end: 20090905
  2. CARNACULIN [Concomitant]
     Indication: PROPHYLAXIS
     Route: 048
     Dates: start: 20090116, end: 20090907
  3. CARNACULIN [Concomitant]
     Indication: PROPHYLAXIS
     Route: 048

REACTIONS (2)
  - Hypertension [Recovering/Resolving]
  - Chest discomfort [Recovering/Resolving]
